FAERS Safety Report 19002816 (Version 1)
Quarter: 2021Q1

REPORT INFORMATION
  Report Type: Spontaneous
  Country: US (occurrence: US)
  Receive Date: 20210312
  Receipt Date: 20210312
  Transmission Date: 20210420
  Serious: No
  Sender: FDA-Public Use
  Company Number: None

PATIENT
  Age: 86 Year
  Sex: Male
  Weight: 78.98 kg

DRUGS (9)
  1. BRAFTOVI [Suspect]
     Active Substance: ENCORAFENIB
     Indication: MALIGNANT MELANOMA
     Route: 048
     Dates: start: 20201129, end: 20210312
  2. DESONIDE. [Concomitant]
     Active Substance: DESONIDE
  3. MEKTOVI [Suspect]
     Active Substance: BINIMETINIB
     Indication: MALIGNANT MELANOMA
     Route: 048
     Dates: start: 20201129, end: 20210312
  4. BIMATOPROST. [Concomitant]
     Active Substance: BIMATOPROST
  5. VITAMIN D2 [Concomitant]
     Active Substance: ERGOCALCIFEROL
  6. COSOPT PF [Concomitant]
     Active Substance: DORZOLAMIDE HYDROCHLORIDE\TIMOLOL MALEATE
  7. LUMIGAN [Concomitant]
     Active Substance: BIMATOPROST
  8. LATANOPROST. [Concomitant]
     Active Substance: LATANOPROST
  9. MULTIVITAMIN ADULT [Concomitant]

REACTIONS (1)
  - Disease progression [None]

NARRATIVE: CASE EVENT DATE: 20210312
